FAERS Safety Report 9665451 (Version 1)
Quarter: 2013Q4

REPORT INFORMATION
  Report Type: Spontaneous
  Country: US (occurrence: None)
  Receive Date: 20131031
  Receipt Date: 20131031
  Transmission Date: 20140711
  Serious: Yes (Hospitalization)
  Sender: FDA-Public Use
  Company Number: None

PATIENT
  Age: 68 Year
  Sex: Female
  Weight: 71.7 kg

DRUGS (12)
  1. MORPHINE [Suspect]
     Indication: PAIN
     Route: 048
     Dates: start: 20110924, end: 20110925
  2. HEPARIN [Concomitant]
  3. ALLOPURINOL [Concomitant]
  4. ASCORBIC ACID [Concomitant]
  5. CALCIUM CARBONATE [Concomitant]
  6. CARBEDILOL [Concomitant]
  7. DOCUSATE [Concomitant]
  8. HYDROMORPHONE [Concomitant]
  9. LANSOPRAZOLE [Concomitant]
  10. LEVOTHYROXINE [Concomitant]
  11. MULTIVITAMIN [Concomitant]
  12. SENNA [Concomitant]

REACTIONS (4)
  - Somnolence [None]
  - Wheezing [None]
  - Respiratory acidosis [None]
  - Inappropriate schedule of drug administration [None]
